FAERS Safety Report 18687771 (Version 1)
Quarter: 2020Q4

REPORT INFORMATION
  Report Type: Spontaneous
  Country: US (occurrence: US)
  Receive Date: 20201230
  Receipt Date: 20201230
  Transmission Date: 20210114
  Serious: Yes (Disabling)
  Sender: FDA-Public Use
  Company Number: None

PATIENT
  Age: 73 Year
  Weight: 67.5 kg

DRUGS (11)
  1. VITAMIN E [Concomitant]
     Active Substance: .ALPHA.-TOCOPHEROL
  2. NIACIN. [Concomitant]
     Active Substance: NIACIN
  3. VITAMINS B [Concomitant]
  4. FISH OIL [Concomitant]
     Active Substance: FISH OIL
  5. ALOE VERA [Concomitant]
     Active Substance: ALOE VERA LEAF
  6. PAROEX [Suspect]
     Active Substance: CHLORHEXIDINE GLUCONATE
     Indication: TOOTH EXTRACTION
     Dosage: ?          QUANTITY:473 OUNCE(S);?
     Route: 048
     Dates: start: 20201008, end: 20201228
  7. MAGNESIUM [Concomitant]
     Active Substance: MAGNESIUM
  8. PANETHETIC ACID [Concomitant]
  9. VITAMIN D [Concomitant]
     Active Substance: VITAMIN D NOS
  10. VITAMIN C [Concomitant]
     Active Substance: ASCORBIC ACID
  11. CALCIUM [Concomitant]
     Active Substance: CALCIUM

REACTIONS (4)
  - Stomatitis [None]
  - Urinary tract infection [None]
  - Fatigue [None]
  - Recalled product administered [None]

NARRATIVE: CASE EVENT DATE: 20201201
